FAERS Safety Report 6748644-6 (Version None)
Quarter: 2010Q2

REPORT INFORMATION
  Report Type: 
  Country: None (occurrence: None)
  Receive Date: 20100601
  Receipt Date: 20100521
  Transmission Date: 20101027
  Serious: Yes (Death, Hospitalization)
  Sender: FDA-Public Use
  Company Number: IT-BAYER-201026385GPV

PATIENT
  Age: 63 Year
  Sex: Male

DRUGS (3)
  1. SORAFENIB [Suspect]
     Indication: HEPATIC NEOPLASM MALIGNANT
     Route: 048
  2. SORAFENIB [Suspect]
     Route: 048
  3. RAMIPRIL [Concomitant]
     Indication: HYPERTENSION

REACTIONS (9)
  - ABDOMINAL DISCOMFORT [None]
  - CHEST PAIN [None]
  - COLON CANCER RECURRENT [None]
  - DYSPNOEA [None]
  - ELECTROCARDIOGRAM ST SEGMENT ELEVATION [None]
  - NAUSEA [None]
  - PALPITATIONS [None]
  - PRINZMETAL ANGINA [None]
  - VOMITING [None]
